FAERS Safety Report 22377509 (Version 1)
Quarter: 2023Q2

REPORT INFORMATION
  Report Type: Report from Study
  Country: US (occurrence: None)
  Receive Date: 20230529
  Receipt Date: 20230529
  Transmission Date: 20230721
  Serious: Yes (Death)
  Sender: FDA-Public Use
  Company Number: 2023A122016

PATIENT
  Sex: Male

DRUGS (1)
  1. LOKELMA [Suspect]
     Active Substance: SODIUM ZIRCONIUM CYCLOSILICATE
     Dosage: 10 GRAM POWDER PACKET (DISSOLVE 1 PACKET IN 4-6 OZ OF WATER AND CONSUME BY MOUTH DAILY AS DIRECTED.)
     Route: 048

REACTIONS (1)
  - Death [Fatal]
